FAERS Safety Report 6945368-7 (Version None)
Quarter: 2010Q3

REPORT INFORMATION
  Report Type: 
  Country: None (occurrence: None)
  Receive Date: 20100827
  Receipt Date: 20100819
  Transmission Date: 20110219
  Serious: Yes (Other)
  Sender: FDA-Public Use
  Company Number: FR-JNJFOC-20100804856

PATIENT
  Sex: Male

DRUGS (3)
  1. PREZISTA [Suspect]
     Indication: HIV INFECTION
     Route: 048
     Dates: start: 20100501, end: 20100818
  2. NORVIR [Concomitant]
     Indication: HIV INFECTION
     Dates: start: 20100501, end: 20100818
  3. TRUVADA [Concomitant]
     Indication: HIV INFECTION
     Dates: start: 20100501

REACTIONS (2)
  - AUTOIMMUNE THROMBOCYTOPENIA [None]
  - CYTOLYTIC HEPATITIS [None]
